FAERS Safety Report 10012758 (Version 1)
Quarter: 2014Q1

REPORT INFORMATION
  Report Type: Spontaneous
  Country: HK (occurrence: HK)
  Receive Date: 20140314
  Receipt Date: 20140314
  Transmission Date: 20141002
  Serious: Yes (Other)
  Sender: FDA-Public Use
  Company Number: HK-PFIZER INC-2014070416

PATIENT
  Sex: Male

DRUGS (1)
  1. CARDURA XL [Suspect]

REACTIONS (2)
  - Dysuria [Unknown]
  - Drug ineffective [Unknown]
